FAERS Safety Report 10426721 (Version 1)
Quarter: 2014Q3

REPORT INFORMATION
  Report Type: Spontaneous
  Country: US (occurrence: US)
  Receive Date: 20140903
  Receipt Date: 20140903
  Transmission Date: 20150326
  Serious: No
  Sender: FDA-Public Use
  Company Number: US-BAYER-2014-130209

PATIENT
  Age: 34 Year
  Sex: Female
  Weight: 91 kg

DRUGS (2)
  1. ALEVE [Suspect]
     Active Substance: NAPROXEN SODIUM
     Indication: ANALGESIC THERAPY
     Dosage: 9-12 UNITS EVERY DAY
     Route: 048
     Dates: start: 201408, end: 20140824
  2. METHOCARBAMOL [METHOCARBAMOL] [Concomitant]
     Indication: NECK INJURY

REACTIONS (5)
  - Urticaria [Recovered/Resolved]
  - Erythema [Recovered/Resolved]
  - Overdose [None]
  - Off label use [None]
  - Wheezing [Recovered/Resolved]

NARRATIVE: CASE EVENT DATE: 201408
